FAERS Safety Report 16780037 (Version 2)
Quarter: 2019Q4

REPORT INFORMATION
  Report Type: Spontaneous
  Country: US (occurrence: US)
  Receive Date: 20190906
  Receipt Date: 20191003
  Transmission Date: 20200122
  Serious: No
  Sender: FDA-Public Use
  Company Number: US-ASTRAZENECA-2019SF16984

PATIENT
  Age: 62 Year
  Sex: Female
  Weight: 56.2 kg

DRUGS (1)
  1. BYDUREON BCISE [Suspect]
     Active Substance: EXENATIDE
     Indication: TYPE 2 DIABETES MELLITUS
     Route: 058

REACTIONS (6)
  - Needle track marks [Not Recovered/Not Resolved]
  - Injection site haemorrhage [Unknown]
  - Needle issue [Unknown]
  - Injection site mass [Recovered/Resolved with Sequelae]
  - Device leakage [Unknown]
  - Device malfunction [Unknown]
